FAERS Safety Report 14910393 (Version 1)
Quarter: 2018Q2

REPORT INFORMATION
  Report Type: Spontaneous
  Country: US (occurrence: US)
  Receive Date: 20180430
  Receipt Date: 20180430
  Transmission Date: 20180711
  Serious: Yes (Hospitalization)
  Sender: FDA-Public Use
  Company Number: None

PATIENT
  Age: 13 Year
  Sex: Male

DRUGS (4)
  1. COMPLETE FORM D3000 [Concomitant]
  2. BOOST COMPACT VAN [Concomitant]
  3. SODIUM CHLORIDE. [Suspect]
     Active Substance: SODIUM CHLORIDE
     Indication: CYSTIC FIBROSIS
     Dosage: ?          OTHER FREQUENCY:EVERY MORNING ;?
     Route: 055
     Dates: start: 20171117
  4. SMZ/TMP SUSP [Concomitant]

REACTIONS (1)
  - Hospitalisation [None]
